FAERS Safety Report 19185217 (Version 1)
Quarter: 2021Q2

REPORT INFORMATION
  Report Type: Spontaneous
  Country: US (occurrence: US)
  Receive Date: 20210427
  Receipt Date: 20210427
  Transmission Date: 20210717
  Serious: Yes (Hospitalization)
  Sender: FDA-Public Use
  Company Number: None

PATIENT
  Sex: Female
  Weight: 118 kg

DRUGS (1)
  1. IOHEXOL [Suspect]
     Active Substance: IOHEXOL

REACTIONS (2)
  - Spinal cord compression [None]
  - Metastases to spine [None]

NARRATIVE: CASE EVENT DATE: 20210415
